FAERS Safety Report 5703044-2 (Version None)
Quarter: 2008Q2

REPORT INFORMATION
  Report Type: 
  Country: None (occurrence: None)
  Receive Date: 20080411
  Receipt Date: 20080331
  Transmission Date: 20081010
  Serious: Yes (Other)
  Sender: FDA-Public Use
  Company Number: US-ELI_LILLY_AND_COMPANY-US200803003169

PATIENT
  Age: 42 Year
  Sex: Female

DRUGS (5)
  1. CYMBALTA [Suspect]
     Indication: DEPRESSION
     Dosage: 60 MG, UNK
     Dates: start: 20060101, end: 20060901
  2. CYMBALTA [Suspect]
     Dosage: 90 MG, UNK
     Dates: start: 20060901, end: 20080217
  3. CYMBALTA [Suspect]
     Dosage: 60 MG, UNK
     Dates: start: 20080218, end: 20080229
  4. PREMARIN [Concomitant]
     Indication: MENOPAUSAL SYMPTOMS
     Dosage: 0.45 MG, UNK
     Dates: start: 20060322
  5. LISINOPRIL AND HYDROCHLOROTHIAZIDE [Concomitant]
     Indication: HYPERTENSION
     Dosage: 1 D/F, UNK
     Dates: start: 20060913

REACTIONS (9)
  - CRYING [None]
  - DRUG WITHDRAWAL SYNDROME [None]
  - EMOTIONAL DISORDER [None]
  - ERYTHEMA [None]
  - FEELING ABNORMAL [None]
  - GRAND MAL CONVULSION [None]
  - HYPOAESTHESIA ORAL [None]
  - HYPOKALAEMIA [None]
  - TREMOR [None]
